FAERS Safety Report 4436439-8 (Version None)
Quarter: 2004Q3

REPORT INFORMATION
  Report Type: 
  Country: None (occurrence: None)
  Receive Date: 20040830
  Receipt Date: 20040513
  Transmission Date: 20050211
  Serious: No
  Sender: FDA-Public Use
  Company Number: US-BRISTOL-MYERS SQUIBB COMPANY-12586285

PATIENT
  Age: 43 Year
  Sex: Male

DRUGS (4)
  1. ABILIFY [Suspect]
     Indication: BIPOLAR DISORDER
     Route: 048
  2. BUSPAR [Concomitant]
  3. XANAX [Concomitant]
  4. BENADRYL [Concomitant]

REACTIONS (1)
  - MAJOR DEPRESSION [None]
